FAERS Safety Report 7043268-8 (Version None)
Quarter: 2010Q4

REPORT INFORMATION
  Report Type: 
  Country: None (occurrence: None)
  Receive Date: 20101013
  Receipt Date: 20100114
  Transmission Date: 20110411
  Serious: Yes (Other)
  Sender: FDA-Public Use
  Company Number: US-ASTRAZENECA-2010SE01676

PATIENT
  Age: 52 Year
  Sex: Male

DRUGS (3)
  1. SYMBICORT [Suspect]
     Indication: ASTHMA
     Route: 055
     Dates: start: 20090801
  2. NASONEX [Concomitant]
  3. SINGULAIR [Concomitant]

REACTIONS (4)
  - CATARACT [None]
  - EMOTIONAL DISTRESS [None]
  - HEADACHE [None]
  - URTICARIA [None]
